FAERS Safety Report 5707542-7 (Version None)
Quarter: 2008Q2

REPORT INFORMATION
  Report Type: 
  Country: None (occurrence: None)
  Receive Date: 20080411
  Receipt Date: 20070814
  Transmission Date: 20081010
  Serious: Yes (Other)
  Sender: FDA-Public Use
  Company Number: 8026034

PATIENT
  Age: 60 Year
  Sex: Female
  Weight: 77.27 kg

DRUGS (5)
  1. METADATE CD [Suspect]
     Indication: ATTENTION DEFICIT/HYPERACTIVITY DISORDER
     Dosage: 40 MG /D PO
     Route: 048
     Dates: start: 20070802, end: 20070813
  2. EFFEXOR XR [Concomitant]
  3. TRAZADOL [Concomitant]
  4. TOPAMAX [Concomitant]
  5. ASTHMA INHALER [Concomitant]

REACTIONS (5)
  - ANXIETY [None]
  - CHEST DISCOMFORT [None]
  - DEPRESSION [None]
  - DYSPNOEA [None]
  - SUICIDAL IDEATION [None]
